FAERS Safety Report 9613310 (Version 2)
Quarter: 2013Q4

REPORT INFORMATION
  Report Type: Spontaneous
  Country: US (occurrence: US)
  Receive Date: 20131010
  Receipt Date: 20131217
  Transmission Date: 20140711
  Serious: Yes (Hospitalization, Other)
  Sender: FDA-Public Use
  Company Number: US-BRISTOL-MYERS SQUIBB COMPANY-19526862

PATIENT
  Age: 54 Year
  Sex: Male

DRUGS (10)
  1. BYETTA [Suspect]
     Indication: TYPE 2 DIABETES MELLITUS
     Route: 058
     Dates: start: 20110930
  2. JANUMET [Suspect]
     Indication: TYPE 2 DIABETES MELLITUS
     Dates: start: 20110930
  3. ALTACE [Concomitant]
  4. NOVOLOG [Concomitant]
     Dosage: NOVOLOG 70-30 30 UNITS
     Route: 058
  5. CREON [Concomitant]
  6. PROMETHAZINE [Concomitant]
  7. REGLAN [Concomitant]
  8. HYDROCODONE + ACETAMINOPHEN [Concomitant]
  9. PROTONIX [Concomitant]
  10. ERYTHROMYCIN [Concomitant]
     Dosage: ERYTHROMYCIN BASE

REACTIONS (1)
  - Adenocarcinoma pancreas [Unknown]
